FAERS Safety Report 22017320 (Version 1)
Quarter: 2023Q1

REPORT INFORMATION
  Report Type: Spontaneous
  Country: IT (occurrence: IT)
  Receive Date: 20230221
  Receipt Date: 20230221
  Transmission Date: 20230417
  Serious: Yes (Other)
  Sender: FDA-Public Use
  Company Number: None

PATIENT
  Age: 67 Year
  Sex: Female
  Weight: 55 kg

DRUGS (2)
  1. PAXLOVID [Interacting]
     Active Substance: NIRMATRELVIR\RITONAVIR
     Indication: COVID-19 treatment
     Dosage: PAXLOVID 150/100 3 TABLETS IN THE MORNING ON 27JAN PAXLOVID 150/100 3 TABLETS IN THE MORNING ON 28JA
     Route: 048
     Dates: start: 20230127, end: 20230128
  2. ENTRESTO [Interacting]
     Active Substance: SACUBITRIL\VALSARTAN
     Indication: Cardiac failure
     Dosage: ENTRESTO 24/26 2 TABLETS/DIE
     Route: 048
     Dates: start: 2021

REACTIONS (5)
  - Hypotension [Recovered/Resolved]
  - Drug interaction [Recovered/Resolved]
  - Dysgeusia [Recovered/Resolved]
  - Diarrhoea [Recovered/Resolved]
  - Product dose omission issue [Unknown]

NARRATIVE: CASE EVENT DATE: 20230127
